FAERS Safety Report 8983739 (Version 2)
Quarter: 2012Q4

REPORT INFORMATION
  Report Type: 
  Country: US (occurrence: US)
  Receive Date: 20121224
  Receipt Date: 20121226
  Transmission Date: 20130627
  Serious: Yes (Other)
  Sender: FDA-Public Use
  Company Number: US-ROCHE-1160060

PATIENT
  Sex: Female
  Weight: 59.86 kg

DRUGS (11)
  1. NEUPOGEN [Suspect]
     Indication: NEUTROPENIA
     Route: 058
     Dates: start: 20120802
  2. RIBAVIRIN [Suspect]
     Indication: NEUTROPENIA
     Route: 065
     Dates: start: 20120706
  3. RIBAVIRIN [Suspect]
     Dosage: Dose at the time of transfusion.
     Route: 065
     Dates: start: 20120816
  4. RIBAVIRIN [Suspect]
     Route: 065
     Dates: start: 20120910, end: 2012
  5. RIBAVIRIN [Suspect]
     Route: 050
     Dates: start: 20120918
  6. PROCRIT [Suspect]
     Indication: ANAEMIA
     Route: 065
     Dates: start: 20120823
  7. PROCRIT [Suspect]
     Route: 050
     Dates: start: 20120911
  8. PROCRIT [Suspect]
     Route: 050
     Dates: start: 20120925, end: 20120928
  9. MOBIC [Concomitant]
  10. PEGASYS [Concomitant]
     Route: 065
     Dates: start: 20120706
  11. FLUOXETINE [Concomitant]

REACTIONS (3)
  - Drug ineffective [Unknown]
  - Aplasia pure red cell [Unknown]
  - Anaemia [Recovering/Resolving]
